FAERS Safety Report 10226397 (Version 2)
Quarter: 2014Q2

REPORT INFORMATION
  Report Type: Spontaneous
  Country: DE (occurrence: DE)
  Receive Date: 20140609
  Receipt Date: 20140609
  Transmission Date: 20141212
  Serious: Yes (Other)
  Sender: FDA-Public Use
  Company Number: DE-009507513-1405DEU011890

PATIENT
  Age: 17 Year
  Sex: Female
  Weight: 50 kg

DRUGS (3)
  1. NOXAFIL [Suspect]
     Indication: FUNGAL INFECTION
     Dosage: 200 MG, TID
     Route: 048
     Dates: start: 20140412, end: 20140508
  2. NOXAFIL [Suspect]
     Indication: PROPHYLAXIS
  3. TEICOPLANIN [Concomitant]
     Indication: PROPHYLAXIS
     Dosage: 400 MG, Q3D

REACTIONS (1)
  - Memory impairment [Recovered/Resolved]
